FAERS Safety Report 10229473 (Version 1)
Quarter: 2014Q2

REPORT INFORMATION
  Report Type: Spontaneous
  Country: US (occurrence: None)
  Receive Date: 20140522
  Receipt Date: 20140522
  Transmission Date: 20141212
  Serious: Yes (Other)
  Sender: FDA-Public Use
  Company Number: 1000054248

PATIENT
  Age: 83 Year
  Sex: Female
  Weight: 69 kg

DRUGS (3)
  1. TUDORZA PRESSAIR (ACLIDINIUM BROMIDE) (400 MICROGRAM, POWDER) [Suspect]
     Indication: CHRONIC OBSTRUCTIVE PULMONARY DISEASE
     Dosage: 800 MCG (400 MCG,2 IN 1 D),RESPIRATORY (INHALATION)
     Route: 055
     Dates: start: 20131016, end: 20131019
  2. PROAIR HFA (SALBUTAMOL SULFATE) (SALBUTAMOL SULFATE) [Concomitant]
  3. ALBUTEROL SULFATE (SALBUTAMOL SULFATE) (SALBUTAMOL SULFATE) [Concomitant]

REACTIONS (1)
  - Bronchospasm paradoxical [None]
